FAERS Safety Report 4898598-2 (Version None)
Quarter: 2006Q1

REPORT INFORMATION
  Report Type: 
  Country: None (occurrence: None)
  Receive Date: 20060130
  Receipt Date: 20060113
  Transmission Date: 20060701
  Serious: Yes (Death)
  Sender: FDA-Public Use
  Company Number: 6019900F

PATIENT
  Sex: Male

DRUGS (1)
  1. NIASPAN [Suspect]
     Dates: start: 20060107, end: 20060109

REACTIONS (1)
  - AORTIC ANEURYSM [None]
